FAERS Safety Report 7889211-0 (Version None)
Quarter: 2011Q4

REPORT INFORMATION
  Report Type: 
  Country: None (occurrence: None)
  Receive Date: 20111103
  Receipt Date: 20111028
  Transmission Date: 20120403
  Serious: Yes (Disabling, Other)
  Sender: FDA-Public Use
  Company Number: US-MERCK-1104USA02988

PATIENT
  Sex: Male

DRUGS (2)
  1. PROPECIA [Suspect]
     Indication: ANDROGENETIC ALOPECIA
     Route: 048
     Dates: start: 20030101, end: 20090101
  2. PROPECIA [Suspect]
     Indication: ALOPECIA
     Route: 048
     Dates: start: 20030101, end: 20090101

REACTIONS (13)
  - TESTICULAR PAIN [None]
  - MALE SEXUAL DYSFUNCTION [None]
  - BREAST PAIN [None]
  - SEMEN VISCOSITY DECREASED [None]
  - LOSS OF LIBIDO [None]
  - FEELING OF DESPAIR [None]
  - ANXIETY [None]
  - BREAST ENLARGEMENT [None]
  - ERECTILE DYSFUNCTION [None]
  - DEPRESSION [None]
  - MALAISE [None]
  - SUICIDAL IDEATION [None]
  - CRYING [None]
